FAERS Safety Report 13965422 (Version 2)
Quarter: 2017Q3

REPORT INFORMATION
  Report Type: Spontaneous
  Country: US (occurrence: US)
  Receive Date: 20170913
  Receipt Date: 20170921
  Transmission Date: 20171128
  Serious: Yes (Hospitalization)
  Sender: FDA-Public Use
  Company Number: US-MALLINCKRODT-T201703529

PATIENT
  Sex: Female

DRUGS (2)
  1. HYDROCODONE [Concomitant]
     Active Substance: HYDROCODONE
     Indication: SPINAL COMPRESSION FRACTURE
     Dosage: 325 MG
  2. H.P. ACTHAR [Suspect]
     Active Substance: CORTICOTROPIN
     Indication: SARCOIDOSIS
     Dosage: 80 UNITS/ 1ML, 2 TIMES PER WEEK, MONDAY AND THURSDAY/MONDAY AND FRIDAY
     Route: 058
     Dates: start: 20170607

REACTIONS (2)
  - Pain [Recovering/Resolving]
  - Spinal compression fracture [Not Recovered/Not Resolved]
